FAERS Safety Report 6622751-0 (Version None)
Quarter: 2010Q1

REPORT INFORMATION
  Report Type: 
  Country: None (occurrence: None)
  Receive Date: 20100304
  Receipt Date: 20100218
  Transmission Date: 20100710
  Serious: Yes (Death, Life-Threatening)
  Sender: FDA-Public Use
  Company Number: 1000010345

PATIENT
  Age: 81 Year
  Sex: Female

DRUGS (11)
  1. ESCITALOPRAM [Suspect]
     Indication: DEPRESSION
     Dosage: 10 MG (10 MG, 1 IN 1 D), ORAL
     Route: 048
     Dates: start: 20040601, end: 20091110
  2. IXPRAM (TABLETS) [Suspect]
     Indication: PAIN
     Dosage: 2 DOSAGE FORMS (2 DOSAGES FORMS, 1 IN 1 D), ORAL
     Route: 048
     Dates: start: 20090929, end: 20091006
  3. PREVISCAN [Suspect]
     Indication: PERIPHERAL ISCHAEMIA
     Dosage: 0.5 DOSAGE FORMS (0.5 DOSAGE FORMS, 1 IN 1 D), ORAL
     Route: 048
     Dates: start: 20080113, end: 20091005
  4. PREVISCAN [Suspect]
     Indication: PERIPHERAL ISCHAEMIA
     Dosage: 0.25 DOSAGE FORMS (0.25 DOSAGE FORMS, 1 IN 1 D), ORAL
     Route: 048
     Dates: start: 20091006, end: 20091012
  5. LOXEN [Concomitant]
  6. TRIATEC [Concomitant]
  7. PRAXILENE [Concomitant]
  8. CONTALAX [Concomitant]
  9. XANAX [Concomitant]
  10. LIORESAL [Concomitant]
  11. ACETAMINOPHEN W/ PROPOXYPHENE HCL [Concomitant]

REACTIONS (7)
  - ANAEMIA [None]
  - DRUG INTERACTION [None]
  - INFLAMMATION [None]
  - INTERNATIONAL NORMALISED RATIO INCREASED [None]
  - MUSCLE HAEMORRHAGE [None]
  - NECROSIS [None]
  - SEPSIS [None]
